FAERS Safety Report 5766350-1 (Version None)
Quarter: 2008Q2

REPORT INFORMATION
  Report Type: 
  Country: None (occurrence: None)
  Receive Date: 20080611
  Receipt Date: 20080603
  Transmission Date: 20081010
  Serious: Yes (Hospitalization)
  Sender: FDA-Public Use
  Company Number: ES-AMGEN-US244561

PATIENT
  Age: 57 Year
  Sex: Male
  Weight: 91 kg

DRUGS (7)
  1. ENBREL [Suspect]
     Indication: ANKYLOSING SPONDYLITIS
     Dosage: UNKNOWN
     Route: 058
     Dates: start: 20070829, end: 20070907
  2. ENBREL [Suspect]
     Dosage: UNKNOWN
     Route: 058
     Dates: start: 20070924
  3. CEMIDON [Suspect]
     Indication: TUBERCULIN TEST POSITIVE
     Dosage: 300 MG
     Route: 048
     Dates: start: 20070709
  4. GABAPENTIN [Suspect]
     Indication: PAIN
     Dosage: 600 MG
     Route: 048
     Dates: start: 20020101
  5. LUDIOMIL [Concomitant]
     Indication: PAIN
     Dosage: ^10^
     Route: 048
     Dates: start: 19970101
  6. LANSOPRAZOLE [Concomitant]
     Indication: GASTRIC ULCER
     Dosage: ^30^
     Route: 048
     Dates: start: 20020101
  7. MST [Concomitant]
     Indication: PAIN
     Dosage: ^10^
     Route: 048
     Dates: start: 20020101

REACTIONS (3)
  - ABDOMINAL DISTENSION [None]
  - ABDOMINAL PAIN [None]
  - DIARRHOEA [None]
